FAERS Safety Report 23634520 (Version 2)
Quarter: 2024Q3

REPORT INFORMATION
  Report Type: Report from Study
  Country: US (occurrence: US)
  Receive Date: 20240315
  Receipt Date: 20240724
  Transmission Date: 20241017
  Serious: Yes (Other)
  Sender: ABBVIE
  Company Number: US-ABBVIE-5678524

PATIENT
  Age: 61 Year
  Sex: Male

DRUGS (1)
  1. SKYRIZI [Suspect]
     Active Substance: RISANKIZUMAB-RZAA
     Indication: Product used for unknown indication
     Route: 058

REACTIONS (5)
  - Rotator cuff syndrome [Unknown]
  - Shoulder operation [Unknown]
  - Limb operation [Unknown]
  - Elbow operation [Unknown]
  - Myalgia [Unknown]

NARRATIVE: CASE EVENT DATE: 20230125
